FAERS Safety Report 15154815 (Version 1)
Quarter: 2018Q3

REPORT INFORMATION
  Report Type: Spontaneous
  Country: BR (occurrence: BR)
  Receive Date: 20180717
  Receipt Date: 20180717
  Transmission Date: 20181010
  Serious: Yes (Hospitalization, Other)
  Sender: FDA-Public Use
  Company Number: BR-GLAXOSMITHKLINE-BR2018GSK124522

PATIENT
  Age: 9 Month
  Sex: Female
  Weight: 7 kg

DRUGS (5)
  1. SERETIDE [Suspect]
     Active Substance: FLUTICASONE PROPIONATE\SALMETEROL XINAFOATE
     Indication: PRODUCT USED FOR UNKNOWN INDICATION
     Dosage: 1 PUFF(S), BID
     Route: 055
  2. AEROLIN [Suspect]
     Active Substance: ALBUTEROL
     Indication: ASTHMA
     Dosage: 4 PUFF(S), Z
     Route: 055
     Dates: start: 201803, end: 20180710
  3. FLIXOTIDE (CFC?FREE) [Suspect]
     Active Substance: FLUTICASONE PROPIONATE
     Indication: ASTHMA
     Dosage: 2 PUFF(S), BID
     Route: 055
     Dates: start: 201803, end: 20180710
  4. CLENIL HFA [Concomitant]
     Indication: ASTHMA
     Dosage: 2 PUFF(S), QD (50MG)
     Route: 055
     Dates: start: 201803, end: 20180710
  5. CLENIL HFA [Concomitant]
     Dosage: 2 PUFF(S), QD (250 MG)
     Route: 055
     Dates: start: 201803, end: 20180710

REACTIONS (4)
  - Product use issue [Unknown]
  - Product prescribing issue [Not Recovered/Not Resolved]
  - Drug administered to patient of inappropriate age [Unknown]
  - Hospitalisation [Recovered/Resolved]

NARRATIVE: CASE EVENT DATE: 20180627
